FAERS Safety Report 6451754-4 (Version None)
Quarter: 2009Q4

REPORT INFORMATION
  Report Type: 
  Country: None (occurrence: None)
  Receive Date: 20091120
  Receipt Date: 20091120
  Transmission Date: 20100525
  Serious: Yes (Hospitalization)
  Sender: FDA-Public Use
  Company Number: None

PATIENT
  Age: 80 Year
  Sex: Male
  Weight: 92.53 kg

DRUGS (1)
  1. LENALIDOMIDE [Suspect]
     Indication: IMMUNOMODULATORY THERAPY
     Dosage: 10 MG EVERY DAY PO
     Route: 048
     Dates: start: 20090406, end: 20090506

REACTIONS (6)
  - BONE MARROW FAILURE [None]
  - COUGH [None]
  - NEUTROPENIA [None]
  - OROPHARYNGEAL PAIN [None]
  - PAIN [None]
  - PYREXIA [None]
